FAERS Safety Report 12985178 (Version 1)
Quarter: 2016Q4

REPORT INFORMATION
  Report Type: Spontaneous
  Country: US (occurrence: US)
  Receive Date: 20161129
  Receipt Date: 20161129
  Transmission Date: 20170207
  Serious: Yes (Other)
  Sender: FDA-Public Use
  Company Number: US-009507513-1611USA010888

PATIENT
  Age: 21 Year
  Sex: Female
  Weight: 54.42 kg

DRUGS (1)
  1. NEXPLANON [Suspect]
     Active Substance: ETONOGESTREL
     Indication: CONTRACEPTION
     Dosage: 3-YEAR IMPLANT, IN RIGHT ARM
     Route: 059

REACTIONS (4)
  - Unintended pregnancy [Unknown]
  - Vaginal haemorrhage [Unknown]
  - Pregnancy with implant contraceptive [Unknown]
  - Vaginal haemorrhage [Recovered/Resolved]

NARRATIVE: CASE EVENT DATE: 20161101
